FAERS Safety Report 9462668 (Version 1)
Quarter: 2013Q3

REPORT INFORMATION
  Report Type: Spontaneous
  Country: BR (occurrence: BR)
  Receive Date: 20130816
  Receipt Date: 20130816
  Transmission Date: 20140515
  Serious: Yes (Hospitalization, Other)
  Sender: FDA-Public Use
  Company Number: BR-ELI_LILLY_AND_COMPANY-BR201308001964

PATIENT
  Sex: Male
  Weight: 69 kg

DRUGS (16)
  1. HUMULIN N [Suspect]
     Indication: DIABETES MELLITUS
     Dosage: 30 IU, EACH MORNING
     Route: 058
     Dates: start: 2001
  2. HUMULIN N [Suspect]
     Dosage: 10 IU, EACH EVENING
     Route: 058
  3. HUMULIN N [Suspect]
     Dosage: 30 IU, EACH MORNING
     Route: 058
  4. HUMULIN N [Suspect]
     Dosage: 8 IU, EACH EVENING
     Route: 058
  5. HUMULIN R [Suspect]
     Indication: DIABETES MELLITUS MANAGEMENT
     Dosage: UNK UNK, UNKNOWN
     Route: 058
  6. HUMULIN R [Suspect]
     Dosage: 5 IU, EACH MORNING
     Route: 058
  7. HUMULIN R [Suspect]
     Dosage: 5 IU, EACH EVENING
     Route: 058
  8. MONOCORDIL [Concomitant]
     Indication: CARDIAC DISORDER
     Dosage: 25 MG, BID
     Route: 065
  9. LASIX [Concomitant]
     Indication: DIURETIC THERAPY
     Dosage: 25 MG, BID
     Route: 065
  10. SINVASTATINA [Concomitant]
     Indication: BLOOD CHOLESTEROL
     Dosage: 20 MG, QD
     Route: 065
  11. OMEPRAZOL [Concomitant]
     Indication: DYSBACTERIOSIS
     Dosage: 20 MG, QD
     Route: 065
  12. CALCITRIOL [Concomitant]
     Indication: OSTEOPOROSIS
     Dosage: 0.25 MG, QD
     Route: 065
  13. AAS [Concomitant]
     Dosage: 100 MG, QD
     Route: 065
  14. NORVASC [Concomitant]
     Dosage: 5 MG, BID
     Route: 065
  15. COMPLEXO B                         /00003501/ [Concomitant]
     Indication: VITAMIN SUPPLEMENTATION
     Dosage: UNK, UNKNOWN
     Route: 065
  16. SUSTRATE [Concomitant]
     Indication: CARDIAC DISORDER
     Dosage: 10 MG, QD
     Route: 002

REACTIONS (12)
  - Apnoea [Recovered/Resolved]
  - Pulmonary arterial pressure increased [Recovered/Resolved]
  - Emphysema [Recovered/Resolved]
  - Pneumonia [Recovered/Resolved]
  - Neuropathy peripheral [Not Recovered/Not Resolved]
  - Blood potassium increased [Not Recovered/Not Resolved]
  - Blood glucose increased [Not Recovered/Not Resolved]
  - Intentional drug misuse [Unknown]
  - Medication error [Unknown]
  - Muscle spasms [Recovered/Resolved]
  - Medication error [Unknown]
  - Hypoglycaemia [Recovered/Resolved]
